FAERS Safety Report 5162346-1 (Version None)
Quarter: 2006Q4

REPORT INFORMATION
  Report Type: 
  Country: None (occurrence: None)
  Receive Date: 20061130
  Receipt Date: 20061018
  Transmission Date: 20070319
  Serious: Yes (Life-Threatening, Hospitalization)
  Sender: FDA-Public Use
  Company Number: JP-MERCK-0610USA12052

PATIENT
  Age: 80 Year
  Sex: Female
  Weight: 51 kg

DRUGS (8)
  1. FOSAMAX [Suspect]
     Indication: OSTEOPOROSIS
     Route: 048
     Dates: start: 20061004, end: 20060101
  2. JUVELA [Concomitant]
     Route: 048
  3. NIVADIL [Concomitant]
     Route: 048
  4. NITOROL-R [Concomitant]
     Route: 048
  5. ZYRTEC [Concomitant]
     Route: 048
  6. SIGMART [Concomitant]
     Route: 065
  7. ASPIRIN [Concomitant]
     Route: 048
  8. PLETAL [Concomitant]
     Route: 065

REACTIONS (1)
  - GASTROINTESTINAL HAEMORRHAGE [None]
